FAERS Safety Report 21383407 (Version 1)
Quarter: 2022Q3

REPORT INFORMATION
  Report Type: Report from Study
  Country: US (occurrence: US)
  Receive Date: 20220927
  Receipt Date: 20220927
  Transmission Date: 20221027
  Serious: Yes (Hospitalization)
  Sender: FDA-Public Use
  Company Number: US-ABBVIE-4130479

PATIENT
  Sex: Female

DRUGS (4)
  1. HUMIRA [Suspect]
     Active Substance: ADALIMUMAB
     Indication: Rheumatoid arthritis
     Dosage: CITRATE FREE
     Route: 058
  2. Moderna [Concomitant]
     Indication: COVID-19 immunisation
     Dosage: FREQUENCY: 1-1-1?THIRD DOSE
     Route: 030
     Dates: start: 20220701, end: 20220701
  3. Moderna [Concomitant]
     Indication: COVID-19 immunisation
     Dosage: FREQUENCY: 1-1-1?FRIST DOSE
     Route: 030
     Dates: start: 20210301, end: 20210301
  4. Moderna [Concomitant]
     Indication: COVID-19 immunisation
     Dosage: FREQUENCY: 1-1-1?SECOND DOSE
     Route: 030
     Dates: start: 20210401, end: 20210401

REACTIONS (1)
  - Blood pressure decreased [Recovering/Resolving]
